FAERS Safety Report 18503626 (Version 2)
Quarter: 2020Q4

REPORT INFORMATION
  Report Type: Spontaneous
  Country: FR (occurrence: FR)
  Receive Date: 20201113
  Receipt Date: 20201119
  Transmission Date: 20210114
  Serious: Yes (Hospitalization, Other)
  Sender: FDA-Public Use
  Company Number: FR-009507513-2011FRA007949

PATIENT
  Age: 61 Year
  Sex: Male
  Weight: 103 kg

DRUGS (12)
  1. DAIVOBET [Concomitant]
     Active Substance: BETAMETHASONE DIPROPIONATE\CALCIPOTRIENE
     Dosage: UNK
     Dates: start: 2014
  2. DIPROSONE [Suspect]
     Active Substance: BETAMETHASONE DIPROPIONATE
     Dosage: UNK
     Dates: start: 20181217
  3. ENSTILAR [Concomitant]
     Active Substance: BETAMETHASONE DIPROPIONATE\CALCIPOTRIENE HYDRATE
     Dosage: UNK
     Dates: start: 20181217
  4. TALTZ [Concomitant]
     Active Substance: IXEKIZUMAB
     Dosage: 80 MILLIGRAM PER 2 WEEKS
     Route: 058
     Dates: start: 201612, end: 201612
  5. TALTZ [Concomitant]
     Active Substance: IXEKIZUMAB
     Dosage: 80 MILLIGRAM, EVERY 4 WEEKS
     Route: 058
     Dates: start: 201703, end: 20200915
  6. TALTZ [Concomitant]
     Active Substance: IXEKIZUMAB
     Dosage: 80 MILLIGRAM, QOW
     Route: 058
     Dates: start: 201701, end: 201703
  7. RAMIPRIL. [Concomitant]
     Active Substance: RAMIPRIL
     Dosage: UNK
     Dates: start: 20180124, end: 201901
  8. DAIVONEX [Concomitant]
     Active Substance: CALCIPOTRIENE
     Dosage: ONGOIG ON 24-JAN-2018
     Dates: end: 20180124
  9. STAGID [Concomitant]
     Active Substance: METFORMIN PAMOATE
     Dosage: UNK
     Dates: start: 201812
  10. RAMIPRIL. [Concomitant]
     Active Substance: RAMIPRIL
     Dosage: UNK
     Dates: start: 20190619
  11. TALTZ [Concomitant]
     Active Substance: IXEKIZUMAB
     Dosage: 160 MILLIGRAM, EVERY TWO WEEKS
     Route: 058
     Dates: start: 201612, end: 201701
  12. TALTZ [Concomitant]
     Active Substance: IXEKIZUMAB
     Dosage: 80 MILLIGRAM EVERY 15 DAYS
     Route: 058
     Dates: start: 20200915

REACTIONS (1)
  - Acute myocardial infarction [Recovered/Resolved]

NARRATIVE: CASE EVENT DATE: 20190617
